FAERS Safety Report 11159706 (Version 1)
Quarter: 2015Q2

REPORT INFORMATION
  Report Type: Spontaneous
  Country: US (occurrence: US)
  Receive Date: 20150603
  Receipt Date: 20150603
  Transmission Date: 20150821
  Serious: No
  Sender: FDA-Public Use
  Company Number: US-SHIRE-US201504729

PATIENT
  Sex: Male

DRUGS (1)
  1. VYVANSE [Suspect]
     Active Substance: LISDEXAMFETAMINE DIMESYLATE
     Indication: ACCIDENTAL EXPOSURE TO PRODUCT
     Dosage: UNK, ONE DOSE
     Route: 048

REACTIONS (2)
  - Tongue discolouration [Unknown]
  - Accidental exposure to product [Unknown]
